FAERS Safety Report 16367338 (Version 1)
Quarter: 2019Q2

REPORT INFORMATION
  Report Type: Spontaneous
  Country: US (occurrence: US)
  Receive Date: 20190422
  Receipt Date: 20190422
  Transmission Date: 20190711
  Serious: Yes (Other)
  Sender: FDA-Public Use
  Company Number: None

PATIENT
  Age: 60 Year
  Sex: Female

DRUGS (16)
  1. PREDNISONE. [Concomitant]
     Active Substance: PREDNISONE
  2. LIDOCAINE PATCH [Concomitant]
     Active Substance: LIDOCAINE
  3. UPTRAVI [Concomitant]
     Active Substance: SELEXIPAG
  4. GABAPENTIN. [Concomitant]
     Active Substance: GABAPENTIN
  5. GLUCOSAMINE SULFATE [Concomitant]
     Active Substance: GLUCOSAMINE SULFATE
  6. LEVOTHYROXINE. [Concomitant]
     Active Substance: LEVOTHYROXINE
  7. FUROSEMIDE. [Concomitant]
     Active Substance: FUROSEMIDE
  8. AMLODIPINE [Concomitant]
     Active Substance: AMLODIPINE BESYLATE
  9. SILDENAFIL. [Concomitant]
     Active Substance: SILDENAFIL
  10. AZATHIOPRINE. [Concomitant]
     Active Substance: AZATHIOPRINE
  11. HUMULIN 70/30 [Concomitant]
     Active Substance: INSULIN HUMAN
  12. ASPIRIN. [Concomitant]
     Active Substance: ASPIRIN
  13. OPSUMIT [Suspect]
     Active Substance: MACITENTAN
     Indication: PULMONARY ARTERIAL HYPERTENSION
     Route: 048
     Dates: start: 201606
  14. HUMULIN R [Concomitant]
     Active Substance: INSULIN HUMAN
  15. LOSARTAN. [Concomitant]
     Active Substance: LOSARTAN
  16. ATORVASTATIN [Concomitant]
     Active Substance: ATORVASTATIN

REACTIONS (3)
  - Musculoskeletal chest pain [None]
  - Musculoskeletal pain [None]
  - Pain [None]

NARRATIVE: CASE EVENT DATE: 20190411
